FAERS Safety Report 24116616 (Version 1)
Quarter: 2024Q3

REPORT INFORMATION
  Report Type: Spontaneous
  Country: US (occurrence: US)
  Receive Date: 20240722
  Receipt Date: 20240722
  Transmission Date: 20241016
  Serious: No
  Sender: ASTELLAS
  Company Number: US-ASTELLAS-2024US017574

PATIENT
  Age: 76 Year
  Sex: Female

DRUGS (3)
  1. MYRBETRIQ [Suspect]
     Active Substance: MIRABEGRON
     Indication: Incontinence
     Route: 048
     Dates: start: 20240612, end: 20240613
  2. MYRBETRIQ [Suspect]
     Active Substance: MIRABEGRON
     Dosage: 100 MG, OTHER (ONCE/ONLY TIME) (TWO TABLETS OF 50 MG WITHIN 15 MINUTES OF EACH)
     Route: 048
     Dates: start: 20240614, end: 20240614
  3. MYRBETRIQ [Suspect]
     Active Substance: MIRABEGRON
     Route: 048

REACTIONS (1)
  - Accidental overdose [Recovered/Resolved]

NARRATIVE: CASE EVENT DATE: 20240614
